FAERS Safety Report 4348388-4 (Version None)
Quarter: 2004Q2

REPORT INFORMATION
  Report Type: 
  Country: None (occurrence: None)
  Receive Date: 20040422
  Receipt Date: 20040402
  Transmission Date: 20050107
  Serious: Yes (Other)
  Sender: FDA-Public Use
  Company Number: FR_040403872

PATIENT
  Age: 65 Year
  Sex: Male

DRUGS (1)
  1. PERGOLIDE MESYLATE [Suspect]

REACTIONS (3)
  - CARDIAC VALVE DISEASE [None]
  - CONDITION AGGRAVATED [None]
  - RIGHT VENTRICULAR FAILURE [None]
